FAERS Safety Report 11292113 (Version 1)
Quarter: 2015Q3

REPORT INFORMATION
  Report Type: Spontaneous
  Country: FR (occurrence: FR)
  Receive Date: 20150722
  Receipt Date: 20150722
  Transmission Date: 20151125
  Serious: Yes (Hospitalization)
  Sender: FDA-Public Use
  Company Number: FR-PFIZER INC-2015238957

PATIENT
  Age: 75 Year
  Sex: Male

DRUGS (7)
  1. JOSIR [Concomitant]
     Active Substance: TAMSULOSIN
     Dosage: UNK
  2. TRIMEBUTINE [Concomitant]
     Active Substance: TRIMEBUTINE
     Dosage: UNK
  3. EFFEXOR LP [Suspect]
     Active Substance: VENLAFAXINE HYDROCHLORIDE
     Dosage: UNK
     Route: 048
     Dates: start: 20150615, end: 20150618
  4. DIOVENOR [Suspect]
     Active Substance: DIOSMIN
     Indication: RECTAL HAEMORRHAGE
  5. ATARAX [Concomitant]
     Active Substance: HYDROXYZINE\HYDROXYZINE HYDROCHLORIDE
     Dosage: UNK
  6. CIALIS [Concomitant]
     Active Substance: TADALAFIL
     Dosage: UNK
  7. DIOVENOR [Suspect]
     Active Substance: DIOSMIN
     Indication: HAEMORRHOIDS
     Dosage: UNK
     Route: 048
     Dates: start: 20150610, end: 20150620

REACTIONS (7)
  - Speech disorder [Unknown]
  - Cerebral disorder [Unknown]
  - Balance disorder [Unknown]
  - Psychiatric symptom [Unknown]
  - Hyponatraemia [Recovered/Resolved]
  - Amnesia [Unknown]
  - Disorientation [Unknown]

NARRATIVE: CASE EVENT DATE: 2015
